FAERS Safety Report 19928501 (Version 1)
Quarter: 2021Q4

REPORT INFORMATION
  Report Type: Spontaneous
  Country: US (occurrence: US)
  Receive Date: 20211005
  Receipt Date: 20211005
  Transmission Date: 20220303
  Serious: Yes (Hospitalization)
  Sender: FDA-Public Use
  Company Number: None

PATIENT
  Age: 74 Year
  Sex: Male

DRUGS (5)
  1. PRALUENT [Suspect]
     Active Substance: ALIROCUMAB
     Indication: Hyperlipidaemia
     Route: 058
     Dates: start: 20180126
  2. BUT/APAP/CAF [Concomitant]
  3. DICYCLOMINE [Concomitant]
     Active Substance: DICYCLOMINE HYDROCHLORIDE
  4. LEVETIRACETAM [Concomitant]
     Active Substance: LEVETIRACETAM
  5. PREVDNT 5000 PST [Concomitant]

REACTIONS (4)
  - Therapy interrupted [None]
  - Fall [None]
  - Skin laceration [None]
  - Subdural haematoma [None]

NARRATIVE: CASE EVENT DATE: 20210528
